FAERS Safety Report 12187829 (Version 3)
Quarter: 2016Q2

REPORT INFORMATION
  Report Type: Spontaneous
  Country: US (occurrence: US)
  Receive Date: 20160317
  Receipt Date: 20160406
  Transmission Date: 20160815
  Serious: Yes (Hospitalization, Other)
  Sender: FDA-Public Use
  Company Number: US-PFIZER INC-2016148612

PATIENT
  Age: 77 Year
  Sex: Male
  Weight: 88 kg

DRUGS (14)
  1. HYDROCHLOROTHIAZIDE. [Concomitant]
     Active Substance: HYDROCHLOROTHIAZIDE
     Indication: BLOOD PRESSURE ABNORMAL
     Dosage: 25 MG, UNK
  2. DOCUSATE SODIUM. [Concomitant]
     Active Substance: DOCUSATE SODIUM
     Indication: ABNORMAL FAECES
     Dosage: 100 MG, UNK
  3. L-LYSINE [Concomitant]
     Active Substance: LYSINE
     Indication: ORAL HERPES
     Dosage: 1 EVERY NOW AND THEN
     Dates: start: 1988
  4. CENTRUM SILVER ADULTS 50+ [Concomitant]
     Active Substance: MINERALS\VITAMINS
     Indication: NUTRITIONAL SUPPLEMENTATION
     Dosage: 1 TABLET A DAY
  5. MOVE FREE ADVANCED [Concomitant]
     Indication: ARTHROPATHY
     Dosage: 2 A DAY, ONE IN THE MORNING AND ONE AT NIGHT
     Dates: start: 2010
  6. FISH OIL NATURE MADE [Concomitant]
     Indication: BLOOD CHOLESTEROL ABNORMAL
     Dosage: 1200 MG; 360MG OMEGA 3
  7. AMLODIPINE BESILATE [Concomitant]
     Active Substance: AMLODIPINE BESYLATE
     Indication: BLOOD PRESSURE ABNORMAL
     Dosage: 10 MG, UNK
  8. PRESERVISION AREDS [Concomitant]
     Active Substance: MINERALS\VITAMINS
     Indication: PROPHYLAXIS
  9. XALATAN [Suspect]
     Active Substance: LATANOPROST
     Indication: PROPHYLAXIS
  10. LEVOTHYROXINE. [Concomitant]
     Active Substance: LEVOTHYROXINE
     Indication: THYROID DISORDER
     Dosage: 100 UG, UNK
  11. XALATAN [Suspect]
     Active Substance: LATANOPROST
     Indication: INTRAOCULAR PRESSURE TEST ABNORMAL
     Dosage: ONE DROP PER EYE, BEFORE BED AT NIGHT
     Dates: start: 2002
  12. HYDROCHLOROTHIAZIDE. [Concomitant]
     Active Substance: HYDROCHLOROTHIAZIDE
     Indication: DIURETIC THERAPY
  13. ASPIRIN. [Concomitant]
     Active Substance: ASPIRIN
     Dosage: 81 MG, UNK
  14. PRESERVISION AREDS [Concomitant]
     Active Substance: MINERALS\VITAMINS
     Indication: MACULAR DEGENERATION
     Dosage: 1 IN THE MORNING AND 1 AT NIGHT
     Dates: start: 2015

REACTIONS (12)
  - Aortic aneurysm [Unknown]
  - Fall [Recovered/Resolved]
  - Dizziness [Recovered/Resolved]
  - Increased appetite [Recovered/Resolved]
  - Internal haemorrhage [Unknown]
  - Arthropathy [Unknown]
  - Decreased appetite [Recovered/Resolved]
  - Weight increased [Not Recovered/Not Resolved]
  - Mass [Unknown]
  - Dysgeusia [Unknown]
  - Tremor [Unknown]
  - Weight decreased [Unknown]

NARRATIVE: CASE EVENT DATE: 2010
